FAERS Safety Report 6884814-4 (Version None)
Quarter: 2010Q3

REPORT INFORMATION
  Report Type: 
  Country: None (occurrence: None)
  Receive Date: 20100729
  Receipt Date: 20070824
  Transmission Date: 20110219
  Serious: No
  Sender: FDA-Public Use
  Company Number: US-PFIZER INC-2007070965

PATIENT
  Sex: Female

DRUGS (3)
  1. CELEBREX [Suspect]
     Indication: FLUID RETENTION
     Dates: start: 20070822
  2. CELEBREX [Suspect]
     Indication: SWELLING
  3. AMOXICILLIN [Suspect]
     Dates: start: 20070822

REACTIONS (10)
  - CLUMSINESS [None]
  - CONFUSIONAL STATE [None]
  - CONTUSION [None]
  - FLATULENCE [None]
  - HEADACHE [None]
  - INSOMNIA [None]
  - NAUSEA [None]
  - PRURITUS [None]
  - PSYCHOMOTOR HYPERACTIVITY [None]
  - SKIN BURNING SENSATION [None]
